FAERS Safety Report 4769105-X (Version None)
Quarter: 2005Q3

REPORT INFORMATION
  Report Type: 
  Country: None (occurrence: None)
  Receive Date: 20050912
  Receipt Date: 20040720
  Transmission Date: 20060218
  Serious: Yes (Hospitalization)
  Sender: FDA-Public Use
  Company Number: 2004-BP-05931BP

PATIENT
  Age: 28 Year
  Sex: Male

DRUGS (3)
  1. VIRAMUNE [Suspect]
     Indication: HIV INFECTION
     Dosage: PO
     Route: 048
     Dates: end: 20040715
  2. VIREAD [Concomitant]
  3. EMTRIVA [Concomitant]

REACTIONS (4)
  - ABDOMINAL PAIN [None]
  - MALAISE [None]
  - PYREXIA [None]
  - RASH [None]
